FAERS Safety Report 6923889-0 (Version None)
Quarter: 2010Q3

REPORT INFORMATION
  Report Type: 
  Country: None (occurrence: None)
  Receive Date: 20100813
  Receipt Date: 20100419
  Transmission Date: 20110219
  Serious: No
  Sender: FDA-Public Use
  Company Number: US-BRISTOL-MYERS SQUIBB COMPANY-15062839

PATIENT
  Age: 42 Year
  Sex: Male

DRUGS (4)
  1. REYATAZ [Suspect]
     Dosage: 150 MG FOR 1-2 WEEKS; NOW TAKING 300MG
     Route: 048
  2. CRESTOR [Concomitant]
  3. EPZICOM [Concomitant]
  4. NORVIR [Concomitant]

REACTIONS (2)
  - MEDICATION ERROR [None]
  - NO ADVERSE EVENT [None]
